FAERS Safety Report 22632562 (Version 1)
Quarter: 2023Q2

REPORT INFORMATION
  Report Type: Spontaneous
  Country: US (occurrence: US)
  Receive Date: 20230623
  Receipt Date: 20230623
  Transmission Date: 20230721
  Serious: No
  Sender: FDA-Public Use
  Company Number: US-UNITED THERAPEUTICS-UNT-2023-012094

PATIENT
  Sex: Female
  Weight: 81.179 kg

DRUGS (6)
  1. REMODULIN [Suspect]
     Active Substance: TREPROSTINIL
     Indication: Pulmonary arterial hypertension
     Dosage: 0.018 ?G/KG (SELF-FILLED REMUNITY; FILL CASSETTE WITH 2.9 ML. RATE OF 33 MCL PER HOUR), CONTINUING
     Route: 058
     Dates: start: 2023
  2. REMODULIN [Suspect]
     Active Substance: TREPROSTINIL
     Dosage: UNK, CONTINUING
     Route: 058
     Dates: start: 20230216
  3. REMODULIN [Suspect]
     Active Substance: TREPROSTINIL
     Indication: Pulmonary arterial hypertension
     Dosage: 0.030 ?G/KG (SELF FILL CASSETTE WITH 2.5 ML; RATE OF 28 MCL PER HOUR), CONTINUING
     Route: 058
     Dates: start: 2023
  4. REMODULIN [Suspect]
     Active Substance: TREPROSTINIL
     Dosage: UNK, CONTINUING
     Route: 058
     Dates: start: 2023
  5. ADEMPAS [Suspect]
     Active Substance: RIOCIGUAT
     Indication: Product used for unknown indication
     Dosage: UNK
     Route: 065
  6. OPSUMIT [Suspect]
     Active Substance: MACITENTAN
     Indication: Pulmonary arterial hypertension
     Dosage: 10 MG, QD (1 TIME EVERY 1 DAY)
     Route: 048
     Dates: start: 202305

REACTIONS (15)
  - Weight increased [Unknown]
  - Menstrual disorder [Unknown]
  - Heavy menstrual bleeding [Unknown]
  - Dysmenorrhoea [Unknown]
  - Abnormal menstrual clots [Unknown]
  - Device maintenance issue [Unknown]
  - Device dislocation [Unknown]
  - Infusion site pain [Unknown]
  - Epistaxis [Unknown]
  - Nasal congestion [Unknown]
  - Seasonal allergy [Unknown]
  - Respiratory tract congestion [Unknown]
  - Depression [Unknown]
  - Pain in extremity [Unknown]
  - Attention deficit hyperactivity disorder [Unknown]

NARRATIVE: CASE EVENT DATE: 20230101
